FAERS Safety Report 9897091 (Version 1)
Quarter: 2014Q1

REPORT INFORMATION
  Report Type: Spontaneous
  Country: US (occurrence: US)
  Receive Date: 20140214
  Receipt Date: 20140214
  Transmission Date: 20141002
  Serious: No
  Sender: FDA-Public Use
  Company Number: US-BIOGENIDEC-2014BI014981

PATIENT
  Age: 71 Year
  Sex: Female

DRUGS (6)
  1. AVONEX [Suspect]
     Indication: MULTIPLE SCLEROSIS
     Route: 030
     Dates: start: 20070117
  2. ASPIRIN ADULT LOW STRENGTH [Concomitant]
  3. FELODIPINE [Concomitant]
  4. METOPROLOL SUCCINATE [Concomitant]
  5. PROVIGIL [Concomitant]
  6. SLOW FE [Concomitant]

REACTIONS (2)
  - Skin discolouration [Unknown]
  - Melanocytic naevus [Unknown]
